FAERS Safety Report 8058028-9 (Version None)
Quarter: 2012Q1

REPORT INFORMATION
  Report Type: 
  Country: None (occurrence: None)
  Receive Date: 20120118
  Receipt Date: 20120118
  Transmission Date: 20120608
  Serious: Yes (Life-Threatening, Hospitalization)
  Sender: FDA-Public Use
  Company Number: None

PATIENT

DRUGS (2)
  1. LISINOPRIL [Suspect]
     Indication: HYPERTENSION
     Dosage: 5 MG EVERY DAY PO
     Route: 048
     Dates: start: 20110915, end: 20110919
  2. ATENOLOL AND CHLORTHALIDONE [Suspect]
     Indication: HYPERTENSION
     Dosage: 50/25 MG EVERY DAY PO
     Route: 048
     Dates: start: 20110808, end: 20110917

REACTIONS (5)
  - ASTHENIA [None]
  - DIPLOPIA [None]
  - HYPONATRAEMIA [None]
  - CACHEXIA [None]
  - OSMOTIC DEMYELINATION SYNDROME [None]
